FAERS Safety Report 15735222 (Version 1)
Quarter: 2018Q4

REPORT INFORMATION
  Report Type: Spontaneous
  Country: US (occurrence: US)
  Receive Date: 20181218
  Receipt Date: 20181218
  Transmission Date: 20190205
  Serious: Yes (Death)
  Sender: FDA-Public Use
  Company Number: None

PATIENT
  Sex: Female

DRUGS (2)
  1. NOT REPORTED [Concomitant]
  2. ZARXIO [Suspect]
     Active Substance: FILGRASTIM-SNDZ
     Indication: METASTASIS
     Dosage: ?          OTHER FREQUENCY:Q21 DAYS;?
     Route: 058
     Dates: start: 20181108

REACTIONS (1)
  - Death [None]
